FAERS Safety Report 8127855-1 (Version None)
Quarter: 2012Q1

REPORT INFORMATION
  Report Type: 
  Country: None (occurrence: None)
  Receive Date: 20120210
  Receipt Date: 20110902
  Transmission Date: 20120608
  Serious: Yes (Other)
  Sender: FDA-Public Use
  Company Number: US-GLAXOSMITHKLINE-A0943353A

PATIENT
  Sex: Male

DRUGS (2)
  1. PAROXETINE [Suspect]
     Dosage: 40MG PER DAY
     Route: 048
  2. NO CONCURRENT MEDICATION [Concomitant]

REACTIONS (3)
  - MANIA [None]
  - SUICIDAL IDEATION [None]
  - AGGRESSION [None]
